FAERS Safety Report 4850665-5 (Version None)
Quarter: 2005Q4

REPORT INFORMATION
  Report Type: 
  Country: None (occurrence: None)
  Receive Date: 20051208
  Receipt Date: 20051208
  Transmission Date: 20060501
  Serious: Yes (Other)
  Sender: FDA-Public Use
  Company Number: None

PATIENT
  Sex: Male
  Weight: 112.0385 kg

DRUGS (8)
  1. TRICOR [Suspect]
     Indication: DIABETES MELLITUS
     Dosage: 145 MG ONCE DAILY PO
     Route: 048
     Dates: start: 20050725, end: 20051120
  2. TRICOR [Suspect]
     Indication: DYSLIPIDAEMIA
     Dosage: 145 MG ONCE DAILY PO
     Route: 048
     Dates: start: 20050725, end: 20051120
  3. AVAPRO [Concomitant]
  4. METFORMIN [Concomitant]
  5. CARVEDILOL [Concomitant]
  6. LANTUS [Concomitant]
  7. HUMALOG [Concomitant]
  8. ASPIRIN [Concomitant]

REACTIONS (4)
  - AXILLARY PAIN [None]
  - GAIT DISTURBANCE [None]
  - MUSCULOSKELETAL CHEST PAIN [None]
  - PAIN IN EXTREMITY [None]
